FAERS Safety Report 16747876 (Version 1)
Quarter: 2019Q3

REPORT INFORMATION
  Report Type: Spontaneous
  Country: GB (occurrence: GB)
  Receive Date: 20190827
  Receipt Date: 20190827
  Transmission Date: 20191005
  Serious: Yes (Hospitalization, Other)
  Sender: FDA-Public Use
  Company Number: GB-TEVA-2019-GB-1097233

PATIENT
  Age: 31 Year
  Sex: Female
  Weight: 98 kg

DRUGS (6)
  1. MIRTAZAPINE. [Suspect]
     Active Substance: MIRTAZAPINE
     Indication: DEPRESSION
     Route: 048
     Dates: start: 20190617, end: 20190621
  2. WARFARIN [Concomitant]
     Active Substance: WARFARIN
  3. LANSOPRAZOLE. [Concomitant]
     Active Substance: LANSOPRAZOLE
  4. ORAMORPH [Concomitant]
     Active Substance: MORPHINE SULFATE
  5. GAVISCON [Concomitant]
     Active Substance: ALUMINUM HYDROXIDE\MAGNESIUM CARBONATE
  6. MST CONTINUS [Concomitant]
     Active Substance: MORPHINE SULFATE
     Route: 048

REACTIONS (2)
  - Abdominal pain [Recovering/Resolving]
  - Pancreatitis acute [Recovering/Resolving]

NARRATIVE: CASE EVENT DATE: 20190621
